FAERS Safety Report 9899357 (Version 3)
Quarter: 2015Q3

REPORT INFORMATION
  Report Type: Spontaneous
  Country: US (occurrence: US)
  Receive Date: 20140214
  Receipt Date: 20150810
  Transmission Date: 20151125
  Serious: No
  Sender: FDA-Public Use
  Company Number: US-GILEAD-2011-0047014

PATIENT
  Age: 85 Year
  Sex: Male

DRUGS (1)
  1. LETAIRIS [Suspect]
     Active Substance: AMBRISENTAN
     Indication: PULMONARY HYPERTENSION
     Dosage: 10 MG, UNK
     Route: 048
     Dates: start: 20111102, end: 201111

REACTIONS (3)
  - Asthenia [Unknown]
  - Retching [Unknown]
  - Visual impairment [Unknown]

NARRATIVE: CASE EVENT DATE: 201111
